FAERS Safety Report 19021818 (Version 3)
Quarter: 2021Q1

REPORT INFORMATION
  Report Type: Report from Study
  Country: AU (occurrence: AU)
  Receive Date: 20210317
  Receipt Date: 20210331
  Transmission Date: 20210420
  Serious: Yes (Life-Threatening)
  Sender: FDA-Public Use
  Company Number: AU-PFIZER INC-2021265049

PATIENT
  Weight: 31.6 kg

DRUGS (7)
  1. GEMTUZUMAB OZOGAMICIN [Suspect]
     Active Substance: GEMTUZUMAB OZOGAMICIN
     Indication: ACUTE MYELOID LEUKAEMIA
     Dosage: 3.3 MG (OTHER)
     Route: 042
     Dates: start: 20210213, end: 20210219
  2. AMPHOTERICIN B. [Concomitant]
     Active Substance: AMPHOTERICIN B
     Indication: PROPHYLAXIS
     Dosage: 95 MG, 1X/DAY (IN D./QUOD/O.D.)
     Dates: start: 20210211
  3. AMLODIPINE [Concomitant]
     Active Substance: AMLODIPINE BESYLATE
     Indication: HYPERTENSION
     Dosage: 7.5 MG, 1X/DAY (IN D./QUOD/O.D)
     Dates: start: 20210227, end: 20210308
  4. CYTARABINE. [Concomitant]
     Active Substance: CYTARABINE
     Indication: ACUTE MYELOID LEUKAEMIA
     Dosage: 30 MG (OTHER) (AS PER PROTOCOL FOR CNS 2)
     Dates: start: 20210208, end: 20210224
  5. CEFEPIME [Concomitant]
     Active Substance: CEFEPIME HYDROCHLORIDE
     Indication: FEBRILE NEUTROPENIA
     Dosage: 1.6 G, 1X/DAY (IN D./QUOD/O.D.)
     Dates: start: 20210304, end: 20210305
  6. CYTARABINE. [Concomitant]
     Active Substance: CYTARABINE
     Dosage: 110 MG, 2X/DAY
     Dates: start: 20210211, end: 20210221
  7. MITOXANTRONE HCL [Suspect]
     Active Substance: MITOXANTRONE HYDROCHLORIDE
     Indication: ACUTE MYELOID LEUKAEMIA
     Dosage: 13 MG/M2, 1X/DAY
     Route: 042
     Dates: start: 20210211, end: 20210214

REACTIONS (1)
  - Hypoxia [Not Recovered/Not Resolved]

NARRATIVE: CASE EVENT DATE: 20210309
